FAERS Safety Report 18955966 (Version 3)
Quarter: 2021Q1

REPORT INFORMATION
  Report Type: Spontaneous
  Country: PL (occurrence: PL)
  Receive Date: 20210301
  Receipt Date: 20210325
  Transmission Date: 20210420
  Serious: Yes (Hospitalization)
  Sender: FDA-Public Use
  Company Number: NVSC2021PL044861

PATIENT
  Age: 49 Year
  Sex: Male

DRUGS (18)
  1. EVEROLIMUS. [Concomitant]
     Active Substance: EVEROLIMUS
     Indication: IMMUNOSUPPRESSANT DRUG THERAPY
  2. EVEROLIMUS. [Concomitant]
     Active Substance: EVEROLIMUS
     Indication: LIVER TRANSPLANT
     Dosage: UNK
     Route: 065
     Dates: start: 20160218
  3. DOXORUBICIN [Suspect]
     Active Substance: DOXORUBICIN
     Indication: DIFFUSE LARGE B-CELL LYMPHOMA STAGE IV
     Dosage: UNK UNK, CYCLIC, REDUCED DOSES
     Route: 065
     Dates: end: 20160218
  4. RITUXIMAB. [Suspect]
     Active Substance: RITUXIMAB
     Indication: POST TRANSPLANT LYMPHOPROLIFERATIVE DISORDER
     Dosage: AS A PART OF R?CODOX AND R?IVAC REGIMEN; 4 CYCLES OF R?CODOX FOLLOWED BY R?IVAC
     Route: 065
     Dates: start: 20151110, end: 20160218
  5. METHOTREXATE. [Suspect]
     Active Substance: METHOTREXATE
     Indication: DIFFUSE LARGE B-CELL LYMPHOMA STAGE IV
     Dosage: UNK, CYCLIC, REDUCED DOSES
     Route: 065
     Dates: end: 20160218
  6. CYTARABINE. [Suspect]
     Active Substance: CYTARABINE
     Indication: DIFFUSE LARGE B-CELL LYMPHOMA STAGE IV
     Dosage: UNK UNK, CYCLIC, REDUCED DOSES
     Route: 065
     Dates: end: 20160218
  7. VINCRISTINE [Suspect]
     Active Substance: VINCRISTINE
     Indication: DIFFUSE LARGE B-CELL LYMPHOMA STAGE IV
     Dosage: UNK, CYCLIC, REDUCED DOSES
     Route: 065
     Dates: end: 20160218
  8. DOXORUBICIN [Suspect]
     Active Substance: DOXORUBICIN
     Indication: POST TRANSPLANT LYMPHOPROLIFERATIVE DISORDER
     Dosage: 4 CYCLES OF R?CODOX
     Route: 065
     Dates: start: 20151110, end: 20160218
  9. CYCLOPHOSPHAMIDE. [Suspect]
     Active Substance: CYCLOPHOSPHAMIDE
     Indication: POST TRANSPLANT LYMPHOPROLIFERATIVE DISORDER
     Dosage: UNK, CYCLIC, REDUCED DOSES
     Route: 065
     Dates: end: 20160218
  10. RITUXIMAB. [Suspect]
     Active Substance: RITUXIMAB
     Indication: DIFFUSE LARGE B-CELL LYMPHOMA STAGE IV
     Dosage: UNK, CYCLIC, REDUCED DOSES
     Route: 065
     Dates: end: 20160218
  11. VINCRISTINE [Suspect]
     Active Substance: VINCRISTINE
     Indication: POST TRANSPLANT LYMPHOPROLIFERATIVE DISORDER
     Dosage: 4 CYCLES OF R?CODOX
     Route: 065
     Dates: start: 20151110, end: 20160218
  12. IFOSFAMIDE. [Suspect]
     Active Substance: IFOSFAMIDE
     Indication: DIFFUSE LARGE B-CELL LYMPHOMA STAGE IV
     Dosage: UNK, CYCLIC, REDUCED DOSES
     Route: 065
     Dates: end: 20160218
  13. TACROLIMUS. [Concomitant]
     Active Substance: TACROLIMUS
     Indication: LIVER TRANSPLANT
     Dosage: UNK
     Route: 065
     Dates: start: 20160218
  14. TACROLIMUS. [Concomitant]
     Active Substance: TACROLIMUS
     Indication: IMMUNOSUPPRESSANT DRUG THERAPY
  15. CYTARABINE. [Suspect]
     Active Substance: CYTARABINE
     Indication: POST TRANSPLANT LYMPHOPROLIFERATIVE DISORDER
     Dosage: AS A PART OF R?CODOX AND R?IVAC REGIMEN; 4 CYCLES OF R?CODOX FOLLOWED BY R?IVAC
     Route: 065
     Dates: start: 20151110, end: 20160218
  16. METHOTREXATE. [Suspect]
     Active Substance: METHOTREXATE
     Indication: POST TRANSPLANT LYMPHOPROLIFERATIVE DISORDER
     Dosage: R?IVAC REGIMEN
     Route: 065
     Dates: start: 20151110, end: 20160218
  17. CYCLOPHOSPHAMIDE. [Suspect]
     Active Substance: CYCLOPHOSPHAMIDE
     Indication: DIFFUSE LARGE B-CELL LYMPHOMA STAGE IV
     Dosage: 4 CYCLES OF R?CODOX
     Route: 065
     Dates: start: 20151110, end: 20160218
  18. IFOSFAMIDE. [Suspect]
     Active Substance: IFOSFAMIDE
     Indication: POST TRANSPLANT LYMPHOPROLIFERATIVE DISORDER
     Dosage: R?IVAC REGIMEN
     Route: 065
     Dates: start: 20151110, end: 20160218

REACTIONS (10)
  - Epstein-Barr virus antibody positive [Unknown]
  - Febrile neutropenia [Unknown]
  - Cytomegalovirus test positive [Unknown]
  - Stenotrophomonas infection [Recovered/Resolved]
  - Staphylococcal infection [Recovered/Resolved]
  - Neutropenia [Recovered/Resolved]
  - Product use in unapproved indication [Unknown]
  - Pleural effusion [Unknown]
  - Anaemia [Unknown]
  - Escherichia infection [Recovered/Resolved]
